FAERS Safety Report 24626035 (Version 2)
Quarter: 2025Q1

REPORT INFORMATION
  Report Type: Spontaneous
  Country: CA (occurrence: CA)
  Receive Date: 20241115
  Receipt Date: 20250103
  Transmission Date: 20250409
  Serious: Yes (Other)
  Sender: AMERICAN REGENT
  Company Number: CA-AMERICAN REGENT INC-2024004200

PATIENT
  Age: 55 Year
  Sex: Female

DRUGS (1)
  1. VENOFER [Suspect]
     Active Substance: IRON SUCROSE
     Indication: Product used for unknown indication
     Route: 065
     Dates: start: 20240407, end: 20240407

REACTIONS (2)
  - Prinzmetal angina [Recovered/Resolved]
  - Chest pain [Recovered/Resolved]

NARRATIVE: CASE EVENT DATE: 20240407
